FAERS Safety Report 5148417-4 (Version None)
Quarter: 2006Q4

REPORT INFORMATION
  Report Type: 
  Country: None (occurrence: None)
  Receive Date: 20061110
  Receipt Date: 20060922
  Transmission Date: 20070319
  Serious: Yes (Death, Other)
  Sender: FDA-Public Use
  Company Number: FR-ABBOTT-06P-056-0344756-00

PATIENT
  Sex: Male
  Weight: 53 kg

DRUGS (1)
  1. KALETRA [Suspect]
     Indication: HIV INFECTION
     Route: 048
     Dates: start: 20010101

REACTIONS (2)
  - LUNG NEOPLASM MALIGNANT [None]
  - METASTATIC BRONCHIAL CARCINOMA [None]
